FAERS Safety Report 11382106 (Version 1)
Quarter: 2015Q3

REPORT INFORMATION
  Report Type: Spontaneous
  Country: US (occurrence: US)
  Receive Date: 20150811
  Receipt Date: 20150811
  Transmission Date: 20151125
  Serious: No
  Sender: FDA-Public Use
  Company Number: US-ELI_LILLY_AND_COMPANY-US201001002072

PATIENT
  Age: 42 Year
  Sex: Male

DRUGS (2)
  1. CIALIS [Suspect]
     Active Substance: TADALAFIL
     Dosage: 10 MG, UNKNOWN
     Route: 065
     Dates: start: 20100102, end: 20100102
  2. NITRO /00003201/ [Concomitant]
     Dosage: UNK, UNKNOWN
     Route: 065
     Dates: start: 20100102

REACTIONS (4)
  - Off label use [Recovered/Resolved]
  - Drug interaction [Recovered/Resolved]
  - Asthenia [Recovered/Resolved]
  - Dizziness [Recovered/Resolved]

NARRATIVE: CASE EVENT DATE: 20100102
